FAERS Safety Report 17798358 (Version 1)
Quarter: 2020Q2

REPORT INFORMATION
  Report Type: Report from Study
  Country: BE (occurrence: BE)
  Receive Date: 20200518
  Receipt Date: 20200518
  Transmission Date: 20200714
  Serious: Yes (Life-Threatening, Hospitalization)
  Sender: FDA-Public Use
  Company Number: BE-ROCHE-2602546

PATIENT
  Age: 83 Year
  Sex: Male

DRUGS (1)
  1. PIRFENIDONE. [Suspect]
     Active Substance: PIRFENIDONE
     Indication: IDIOPATHIC PULMONARY FIBROSIS
     Route: 065

REACTIONS (2)
  - Decreased appetite [Recovered/Resolved]
  - General physical health deterioration [Recovered/Resolved]

NARRATIVE: CASE EVENT DATE: 201911
